FAERS Safety Report 16802104 (Version 2)
Quarter: 2019Q3

REPORT INFORMATION
  Report Type: Spontaneous
  Country: US (occurrence: US)
  Receive Date: 20190912
  Receipt Date: 20190913
  Transmission Date: 20191005
  Serious: Yes (Other)
  Sender: FDA-Public Use
  Company Number: US-TEVA-2019-US-1105713

PATIENT
  Sex: Male

DRUGS (2)
  1. TESTOSTERONE GEL [Suspect]
     Active Substance: TESTOSTERONE
     Indication: BLOOD TESTOSTERONE DECREASED
     Dosage: APPLY 2 PUMPS TO EACH INTERIOR THIGH FOR 4 PUMPS TOTAL
     Route: 065
     Dates: start: 201907
  2. TESTOSTERONE GEL [Suspect]
     Active Substance: TESTOSTERONE
     Dosage: APPLY 6 PUMPS TOTAL TO HIS ABDOMEN AND ANTERIOR THIGHS
     Route: 065
     Dates: start: 20190823

REACTIONS (5)
  - Asthenia [Unknown]
  - Loss of personal independence in daily activities [Unknown]
  - Gait inability [Unknown]
  - Blood testosterone decreased [Unknown]
  - Blood testosterone free decreased [Unknown]
